FAERS Safety Report 9287940 (Version 2)
Quarter: 2014Q3

REPORT INFORMATION
  Report Type: Spontaneous
  Country: US (occurrence: US)
  Receive Date: 20130514
  Receipt Date: 20140801
  Transmission Date: 20150326
  Serious: Yes (Hospitalization)
  Sender: FDA-Public Use
  Company Number: US-BAYER-2013-059286

PATIENT
  Age: 19 Year
  Sex: Female
  Weight: 47 kg

DRUGS (10)
  1. ALIGN [Concomitant]
     Active Substance: BIFIDOBACTERIUM LONGUM SUBSP. INFANTIS
     Indication: CROHN^S DISEASE
     Dosage: UNK
     Dates: start: 2012
  2. FERROUS SULFATE [Concomitant]
     Active Substance: FERROUS SULFATE\FERROUS SULFATE, DRIED
     Indication: CROHN^S DISEASE
     Dosage: 65 MG, UNK
     Dates: start: 2007
  3. CIMZIA [Concomitant]
     Active Substance: CERTOLIZUMAB PEGOL
     Indication: CROHN^S DISEASE
     Dosage: UNK
     Dates: start: 2011
  4. ALEVE [NAPROXEN SODIUM] [Concomitant]
     Indication: MUSCLE SPASMS
     Dosage: UNK
     Dates: start: 2007
  5. YASMIN [Suspect]
     Active Substance: DROSPIRENONE\ETHINYL ESTRADIOL
     Indication: CONTRACEPTION
     Dosage: UNK
     Dates: start: 201202, end: 201212
  6. FOLIC ACID. [Concomitant]
     Active Substance: FOLIC ACID
     Indication: CROHN^S DISEASE
     Dosage: UNK
     Dates: start: 2007
  7. BENTYL [Concomitant]
     Active Substance: DICYCLOMINE HYDROCHLORIDE
     Indication: CROHN^S DISEASE
     Dosage: UNK
     Dates: start: 2007
  8. ZOLOFT [Concomitant]
     Active Substance: SERTRALINE HYDROCHLORIDE
     Indication: ANXIETY
     Dosage: UNK
     Dates: start: 2011
  9. YASMIN [Suspect]
     Active Substance: DROSPIRENONE\ETHINYL ESTRADIOL
     Indication: MENSTRUAL CYCLE MANAGEMENT
  10. IMURAN [Concomitant]
     Active Substance: AZATHIOPRINE
     Indication: CROHN^S DISEASE
     Dosage: UNK
     Dates: start: 2007

REACTIONS (9)
  - Deep vein thrombosis [None]
  - Injury [None]
  - Thrombosis [None]
  - Abdominal pain [None]
  - Emotional distress [None]
  - General physical health deterioration [None]
  - Pain in extremity [None]
  - Pain [None]
  - Anxiety [None]

NARRATIVE: CASE EVENT DATE: 201212
